FAERS Safety Report 16737853 (Version 1)
Quarter: 2019Q3

REPORT INFORMATION
  Report Type: Report from Study
  Country: None (occurrence: BR)
  Receive Date: 20190824
  Receipt Date: 20190824
  Transmission Date: 20191005
  Serious: Yes (Death, Hospitalization, Other)
  Sender: FDA-Public Use
  Company Number: BR-ABBVIE-19K-020-2884319-00

PATIENT
  Age: 57 Year
  Sex: Female
  Weight: 71 kg

DRUGS (1)
  1. HUMIRA [Suspect]
     Active Substance: ADALIMUMAB
     Indication: ANKYLOSING SPONDYLITIS
     Route: 058
     Dates: start: 20190624, end: 2019

REACTIONS (10)
  - Spinal disorder [Recovering/Resolving]
  - Pneumonia [Fatal]
  - Diabetes mellitus [Fatal]
  - Sepsis [Fatal]
  - Post procedural complication [Fatal]
  - Complication associated with device [Fatal]
  - Spondylitis [Fatal]
  - Bone marrow disorder [Not Recovered/Not Resolved]
  - Headache [Unknown]
  - Respiratory disorder [Fatal]

NARRATIVE: CASE EVENT DATE: 201907
